FAERS Safety Report 19010467 (Version 2)
Quarter: 2021Q1

REPORT INFORMATION
  Report Type: Spontaneous
  Country: PK (occurrence: PK)
  Receive Date: 20210315
  Receipt Date: 20210324
  Transmission Date: 20210420
  Serious: Yes (Other)
  Sender: FDA-Public Use
  Company Number: PK-APOTEX-2021AP005824

PATIENT
  Age: 56 Year
  Sex: Male

DRUGS (1)
  1. SEROXAT CR MODIFIED RELEASE TABLET [Suspect]
     Active Substance: PAROXETINE HYDROCHLORIDE
     Indication: OBSESSIVE-COMPULSIVE DISORDER
     Dosage: 20 MILLIGRAM, QD
     Route: 065
     Dates: start: 20201205

REACTIONS (3)
  - Dysgraphia [Unknown]
  - Libido decreased [Unknown]
  - Erectile dysfunction [Unknown]

NARRATIVE: CASE EVENT DATE: 20201207
